FAERS Safety Report 22306496 (Version 1)
Quarter: 2023Q2

REPORT INFORMATION
  Report Type: Report from Study
  Country: US (occurrence: US)
  Receive Date: 20230511
  Receipt Date: 20230511
  Transmission Date: 20230721
  Serious: Yes (Hospitalization)
  Sender: FDA-Public Use
  Company Number: US-ABBVIE-4762104

PATIENT
  Sex: Female

DRUGS (1)
  1. HUMIRA [Suspect]
     Active Substance: ADALIMUMAB
     Indication: Rheumatoid arthritis
     Dosage: FORM STRENGTH: 40?FORM STRENGTH UNITS: MILLIGRAM?CITRATE FREE
     Route: 058
     Dates: start: 20230507

REACTIONS (3)
  - Blood glucose increased [Recovering/Resolving]
  - Dizziness [Unknown]
  - Blood pressure increased [Unknown]
